FAERS Safety Report 24525158 (Version 4)
Quarter: 2025Q1

REPORT INFORMATION
  Report Type: Report from Study
  Country: CO (occurrence: CO)
  Receive Date: 20241019
  Receipt Date: 20250321
  Transmission Date: 20250409
  Serious: Yes (Death, Hospitalization, Other)
  Sender: ABBVIE
  Company Number: CO-ABBVIE-5969096

PATIENT
  Age: 65 Year
  Sex: Female
  Weight: 41 kg

DRUGS (2)
  1. VENCLEXTA [Suspect]
     Active Substance: VENETOCLAX
     Indication: Acute myeloid leukaemia
     Dosage: FORM STRENGTH 100 MILLIGRAM MILLIGRAM?FREQUENCY TEXT: 21 DAY CYCLES, VENCLEXTA, STARTED ON FEBRUA...
     Route: 048
     Dates: start: 20240507, end: 20250302
  2. AZACITIDINE [Concomitant]
     Active Substance: AZACITIDINE
     Indication: Product used for unknown indication
     Dates: start: 2024, end: 202503

REACTIONS (6)
  - Unevaluable event [Fatal]
  - Gastric infection [Recovered/Resolved]
  - Peritonitis [Recovered/Resolved]
  - Abdominal pain upper [Not Recovered/Not Resolved]
  - Asthenia [Not Recovered/Not Resolved]
  - Weight decreased [Recovering/Resolving]

NARRATIVE: CASE EVENT DATE: 20240101
